FAERS Safety Report 14853605 (Version 1)
Quarter: 2018Q2

REPORT INFORMATION
  Report Type: Spontaneous
  Country: FR (occurrence: FR)
  Receive Date: 20180507
  Receipt Date: 20180507
  Transmission Date: 20180711
  Serious: Yes (Other)
  Sender: FDA-Public Use
  Company Number: FR-IMPAX LABORATORIES, INC-2018-IPXL-01479

PATIENT
  Age: 8 Month
  Sex: Male

DRUGS (6)
  1. SODIUM [Suspect]
     Active Substance: SODIUM
     Indication: GLUCOCORTICOID DEFICIENCY
  2. FLUDROCORTISONE ACETATE. [Suspect]
     Active Substance: FLUDROCORTISONE ACETATE
     Indication: MINERALOCORTICOID DEFICIENCY
     Dosage: UNK
     Route: 065
  3. SODIUM [Suspect]
     Active Substance: SODIUM
     Indication: MINERALOCORTICOID DEFICIENCY
     Dosage: UNK
     Route: 065
  4. HYDROCORTISONE. [Suspect]
     Active Substance: HYDROCORTISONE
     Indication: GLUCOCORTICOID DEFICIENCY
  5. FLUDROCORTISONE ACETATE. [Suspect]
     Active Substance: FLUDROCORTISONE ACETATE
     Indication: GLUCOCORTICOID DEFICIENCY
  6. HYDROCORTISONE. [Suspect]
     Active Substance: HYDROCORTISONE
     Indication: MINERALOCORTICOID DEFICIENCY
     Dosage: UNK
     Route: 065

REACTIONS (3)
  - Thyroid stimulating hormone deficiency [Unknown]
  - Bradycardia [Unknown]
  - Hypotonia [Unknown]
